FAERS Safety Report 7300314-1 (Version None)
Quarter: 2011Q1

REPORT INFORMATION
  Report Type: 
  Country: None (occurrence: None)
  Receive Date: 20110217
  Receipt Date: 20110204
  Transmission Date: 20110831
  Serious: No
  Sender: FDA-Public Use
  Company Number: US-BIOGENIDEC-2011BI005277

PATIENT
  Age: 50 Year
  Sex: Male

DRUGS (1)
  1. TYSABRI [Suspect]
     Indication: MULTIPLE SCLEROSIS
     Route: 042
     Dates: start: 20100630

REACTIONS (8)
  - FALL [None]
  - INFECTION [None]
  - MUSCLE SPASMS [None]
  - DELUSION [None]
  - PYREXIA [None]
  - DISORIENTATION [None]
  - CYSTITIS [None]
  - CHILLS [None]
